FAERS Safety Report 8615083-2 (Version None)
Quarter: 2012Q3

REPORT INFORMATION
  Report Type: 
  Country: None (occurrence: None)
  Receive Date: 20120823
  Receipt Date: 20120820
  Transmission Date: 20120928
  Serious: Yes (Hospitalization)
  Sender: FDA-Public Use
  Company Number: PHHY2012FR054622

PATIENT
  Sex: Male
  Weight: 78.85 kg

DRUGS (10)
  1. VENTOLIN [Concomitant]
  2. CORDARONE [Concomitant]
  3. NEBIVOLOL [Concomitant]
  4. PRADAXA [Concomitant]
     Indication: ATRIAL FIBRILLATION
     Dosage: 110 MG, BID
  5. FLECAINIDE ACETATE [Concomitant]
     Indication: ATRIAL FIBRILLATION
     Dosage: 200 MG, QD
  6. ALFUZOSIN HYDROCHLORIDE [Concomitant]
  7. LASIX [Concomitant]
  8. SYMBICORT [Concomitant]
     Indication: RESPIRATORY FAILURE
     Dosage: 400 UG, QD
  9. RASILEZ [Suspect]
     Indication: HYPERTENSION
     Dosage: 150 MG, QD
     Route: 048
     Dates: end: 20120624
  10. SILODYX [Concomitant]

REACTIONS (4)
  - NEUTROPENIA [None]
  - SPINAL MYELOGRAM ABNORMAL [None]
  - LEUKOPENIA [None]
  - NORMOCHROMIC NORMOCYTIC ANAEMIA [None]
